FAERS Safety Report 24919193 (Version 1)
Quarter: 2025Q1

REPORT INFORMATION
  Report Type: Spontaneous
  Country: US (occurrence: US)
  Receive Date: 20250204
  Receipt Date: 20250204
  Transmission Date: 20250408
  Serious: No
  Sender: Haleon PLC
  Company Number: US-HALEON-2225801

PATIENT
  Age: 45 Year
  Sex: Female

DRUGS (3)
  1. SENSODYNE SENSITIVITY GUM AND ENAMEL MINT [Suspect]
     Active Substance: STANNOUS FLUORIDE
     Indication: Product used for unknown indication
  2. SENSODYNE SENSITIVITY GUM AND ENAMEL MINT [Suspect]
     Active Substance: STANNOUS FLUORIDE
  3. SENSODYNE PRONAMEL [Suspect]
     Active Substance: POTASSIUM NITRATE\SODIUM FLUORIDE
     Indication: Product used for unknown indication

REACTIONS (4)
  - Hyperaesthesia teeth [Unknown]
  - Oral discomfort [Unknown]
  - Paraesthesia oral [Unknown]
  - Symptom recurrence [Unknown]
